FAERS Safety Report 8226831-8 (Version None)
Quarter: 2012Q1

REPORT INFORMATION
  Report Type: 
  Country: None (occurrence: None)
  Receive Date: 20120322
  Receipt Date: 20120312
  Transmission Date: 20120608
  Serious: Yes (Hospitalization)
  Sender: FDA-Public Use
  Company Number: US-BAYER-2011-100820

PATIENT
  Age: 19 Year
  Sex: Female
  Weight: 59 kg

DRUGS (4)
  1. PREVACID [Concomitant]
     Dosage: 20 MG, BID
     Route: 048
  2. NEXIUM [Concomitant]
     Dosage: 40 MG, DAILY
     Route: 048
  3. YASMIN [Suspect]
     Dosage: UNK
     Dates: start: 20090301, end: 20090701
  4. DROSPIRENONE AND ETHINYL ESTRADIOL [Suspect]
     Dosage: UNK
     Dates: start: 20090301, end: 20090701

REACTIONS (7)
  - CHEST PAIN [None]
  - DYSPNOEA [None]
  - GENERAL PHYSICAL HEALTH DETERIORATION [None]
  - ANXIETY [None]
  - CHOLELITHIASIS [None]
  - PAIN [None]
  - EMOTIONAL DISTRESS [None]
